FAERS Safety Report 9793310 (Version 2)
Quarter: 2014Q1

REPORT INFORMATION
  Report Type: Spontaneous
  Country: US (occurrence: US)
  Receive Date: 20140102
  Receipt Date: 20140205
  Transmission Date: 20141002
  Serious: No
  Sender: FDA-Public Use
  Company Number: US-PFIZER INC-2013373215

PATIENT
  Age: 27 Year
  Sex: Female

DRUGS (4)
  1. ZITHROMAX [Suspect]
     Dosage: UNK
  2. VENLAFAXINE HCL [Suspect]
     Dosage: UNK
  3. PAXIL [Suspect]
     Dosage: UNK
  4. BIAXIN [Suspect]
     Dosage: UNK

REACTIONS (1)
  - Drug hypersensitivity [Unknown]
